FAERS Safety Report 10976141 (Version 2)
Quarter: 2015Q2

REPORT INFORMATION
  Report Type: Spontaneous
  Country: US (occurrence: US)
  Receive Date: 20150401
  Receipt Date: 20150525
  Transmission Date: 20150821
  Serious: No
  Sender: FDA-Public Use
  Company Number: US-JNJFOC-20140300214

PATIENT
  Sex: Male
  Weight: 83.92 kg

DRUGS (1)
  1. RISPERDAL [Suspect]
     Active Substance: RISPERIDONE
     Indication: PRODUCT USED FOR UNKNOWN INDICATION
     Route: 065
     Dates: start: 2008, end: 2009

REACTIONS (3)
  - Weight increased [Recovered/Resolved]
  - Gynaecomastia [Not Recovered/Not Resolved]
  - Treatment noncompliance [Unknown]
